FAERS Safety Report 10568283 (Version 1)
Quarter: 2014Q4

REPORT INFORMATION
  Report Type: Spontaneous
  Country: US (occurrence: None)
  Receive Date: 20141105
  Receipt Date: 20141105
  Transmission Date: 20150529
  Serious: Yes (Hospitalization)
  Sender: FDA-Public Use
  Company Number: None

PATIENT
  Age: 60 Year
  Sex: Female
  Weight: 56 kg

DRUGS (1)
  1. ZOMETA [Suspect]
     Active Substance: ZOLEDRONIC ACID
     Dates: end: 20111028

REACTIONS (4)
  - Ulcer [None]
  - Osteonecrosis of jaw [None]
  - Skeletal injury [None]
  - Oral infection [None]

NARRATIVE: CASE EVENT DATE: 20131216
